FAERS Safety Report 4704964-8 (Version None)
Quarter: 2005Q3

REPORT INFORMATION
  Report Type: 
  Country: None (occurrence: None)
  Receive Date: 20050701
  Receipt Date: 20050622
  Transmission Date: 20060218
  Serious: Yes (Hospitalization)
  Sender: FDA-Public Use
  Company Number: 2005UW09575

PATIENT
  Age: 67 Year
  Sex: Female

DRUGS (11)
  1. CRESTOR [Suspect]
     Route: 048
     Dates: end: 20050601
  2. ZETIA [Suspect]
     Dates: start: 20050501, end: 20050601
  3. TRICOR [Suspect]
     Dates: end: 20050601
  4. EFFEXOR [Suspect]
  5. EVISTA [Suspect]
  6. PLAVIX [Suspect]
  7. TRIAMTERENE [Concomitant]
     Dosage: 37.5/25 MG
  8. ACTOS [Concomitant]
  9. QUININE SULFATE [Concomitant]
  10. ALPHAGAN P [Concomitant]
     Route: 047
  11. CULTIVATE CREAM [Concomitant]

REACTIONS (5)
  - DEHYDRATION [None]
  - INFLUENZA [None]
  - INFLUENZA LIKE ILLNESS [None]
  - LIVER FUNCTION TEST ABNORMAL [None]
  - RHABDOMYOLYSIS [None]
